FAERS Safety Report 13109732 (Version 11)
Quarter: 2018Q4

REPORT INFORMATION
  Report Type: Spontaneous
  Country: US (occurrence: US)
  Receive Date: 20170112
  Receipt Date: 20181019
  Transmission Date: 20190204
  Serious: No
  Sender: FDA-Public Use
  Company Number: US-PFIZER INC-2017013829

PATIENT
  Age: 81 Year
  Sex: Female
  Weight: 71 kg

DRUGS (2)
  1. LYRICA [Suspect]
     Active Substance: PREGABALIN
     Indication: DIABETIC NEUROPATHY
     Dosage: 300 MG, TWICE DAILY (ONE IN THE MORNING AND ONE AT NIGHT)
     Route: 048
  2. LYRICA [Suspect]
     Active Substance: PREGABALIN
     Indication: NEUROPATHY PERIPHERAL
     Dosage: 300 MG, TWICE DAILY (ONE IN THE MORNING AND ONE AT NIGHT)
     Route: 048

REACTIONS (14)
  - Gastric disorder [Unknown]
  - Night sweats [Unknown]
  - Feeling hot [Unknown]
  - Product dose omission [Unknown]
  - Sleep disorder [Unknown]
  - Influenza [Unknown]
  - Withdrawal syndrome [Recovering/Resolving]
  - Feeling abnormal [Unknown]
  - Hyperhidrosis [Unknown]
  - Malaise [Recovering/Resolving]
  - Nervousness [Unknown]
  - Hot flush [Unknown]
  - Eye disorder [Not Recovered/Not Resolved]
  - Prescribed overdose [Unknown]

NARRATIVE: CASE EVENT DATE: 20161121
